FAERS Safety Report 10354633 (Version 2)
Quarter: 2014Q3

REPORT INFORMATION
  Report Type: Spontaneous
  Country: US (occurrence: US)
  Receive Date: 20140731
  Receipt Date: 20140731
  Transmission Date: 20150326
  Serious: Yes (Hospitalization, Other)
  Sender: FDA-Public Use
  Company Number: US-009507513-2009SP023510

PATIENT
  Sex: Female
  Weight: 56.7 kg

DRUGS (3)
  1. NUVARING [Suspect]
     Active Substance: ETHINYL ESTRADIOL\ETONOGESTREL
     Indication: HORMONE LEVEL ABNORMAL
     Dosage: 1 DF, UNK
     Route: 067
     Dates: start: 200701, end: 20070924
  2. NUVARING [Suspect]
     Active Substance: ETHINYL ESTRADIOL\ETONOGESTREL
     Indication: CONTRACEPTION
  3. NUVARING [Suspect]
     Active Substance: ETHINYL ESTRADIOL\ETONOGESTREL
     Indication: PROPHYLAXIS

REACTIONS (9)
  - Deep vein thrombosis [Recovered/Resolved]
  - Thrombophlebitis [Recovered/Resolved]
  - Constipation [Unknown]
  - Thrombectomy [Unknown]
  - Off label use [Unknown]
  - Abnormal withdrawal bleeding [Unknown]
  - Mental disorder [Unknown]
  - Infertility [Unknown]
  - Thrombectomy [Unknown]

NARRATIVE: CASE EVENT DATE: 20070215
